FAERS Safety Report 24002077 (Version 1)
Quarter: 2024Q2

REPORT INFORMATION
  Report Type: Spontaneous
  Country: GB (occurrence: GB)
  Receive Date: 20240622
  Receipt Date: 20240622
  Transmission Date: 20240715
  Serious: Yes (Hospitalization, Other)
  Sender: FDA-Public Use
  Company Number: GB-MHRA-MED-202406121256188360-NLBYJ

PATIENT
  Age: 20 Year
  Sex: Female
  Weight: 41 kg

DRUGS (3)
  1. SERTRALINE [Suspect]
     Active Substance: SERTRALINE HYDROCHLORIDE
     Indication: Product used for unknown indication
     Dosage: 50 MILLIGRAM, ONCE A DAY
     Route: 065
     Dates: start: 20240531, end: 20240610
  2. CONCERTA [Concomitant]
     Active Substance: METHYLPHENIDATE HYDROCHLORIDE
     Indication: Attention deficit hyperactivity disorder
     Dosage: UNK
     Route: 065
  3. IVABRADINE [Concomitant]
     Active Substance: IVABRADINE
     Indication: Product used for unknown indication
     Dosage: UNK
     Route: 065

REACTIONS (5)
  - Dizziness [Recovering/Resolving]
  - Hot flush [Recovering/Resolving]
  - Muscle spasms [Recovering/Resolving]
  - Muscular weakness [Recovering/Resolving]
  - Tachycardia [Recovered/Resolved]

NARRATIVE: CASE EVENT DATE: 20240609
